FAERS Safety Report 8604267-5 (Version None)
Quarter: 2012Q3

REPORT INFORMATION
  Report Type: 
  Country: None (occurrence: None)
  Receive Date: 20120820
  Receipt Date: 20120806
  Transmission Date: 20120928
  Serious: No
  Sender: FDA-Public Use
  Company Number: US-JNJFOC-20120804547

PATIENT
  Sex: Female
  Weight: 63.05 kg

DRUGS (11)
  1. FENTANYL-100 [Suspect]
     Indication: PSORIASIS
     Dosage: NDC# 0781-7241-55
     Route: 062
     Dates: start: 20120803
  2. ESTRADIOL [Concomitant]
     Indication: HORMONE REPLACEMENT THERAPY
     Route: 048
     Dates: start: 20060101
  3. PROMETHAZINE [Concomitant]
     Indication: NAUSEA
     Route: 048
     Dates: start: 20120101
  4. KLONOPIN [Concomitant]
     Indication: ANXIETY
     Route: 048
     Dates: start: 20110101
  5. LITHIUM [Concomitant]
     Indication: BIPOLAR DISORDER
     Route: 048
     Dates: start: 20110101
  6. SOMA [Concomitant]
     Indication: INTERVERTEBRAL DISC DISORDER
     Route: 048
     Dates: start: 20110101
  7. XIFAXAN [Concomitant]
     Indication: PNEUMONIA
     Route: 048
     Dates: start: 20120101
  8. SPIRONOLACTONE [Concomitant]
     Indication: DIURETIC THERAPY
     Route: 048
     Dates: start: 20120101
  9. NEXIUM [Concomitant]
     Indication: COELIAC DISEASE
     Route: 048
     Dates: start: 20110101
  10. SPIRONOLACTONE [Concomitant]
     Indication: SWELLING
     Route: 048
     Dates: start: 20120101
  11. FUROSEMIDE [Concomitant]
     Indication: DIURETIC THERAPY
     Route: 048
     Dates: start: 20120101

REACTIONS (3)
  - PRODUCT QUALITY ISSUE [None]
  - DRUG DOSE OMISSION [None]
  - BACK PAIN [None]
